FAERS Safety Report 9607429 (Version 1)
Quarter: 2013Q4

REPORT INFORMATION
  Report Type: Spontaneous
  Country: US (occurrence: None)
  Receive Date: 20131004
  Receipt Date: 20131004
  Transmission Date: 20140711
  Serious: Yes (Other)
  Sender: FDA-Public Use
  Company Number: PR-AE13-001127

PATIENT
  Sex: Male

DRUGS (1)
  1. BC ARTHRITIS POWDERS: 1000 MG ASPIRIN/65 MG CAFFEINE [Suspect]
     Indication: PAIN
     Route: 048

REACTIONS (2)
  - Repetitive strain injury [None]
  - Dependence [None]
